FAERS Safety Report 8961046 (Version 1)
Quarter: 2012Q4

REPORT INFORMATION
  Report Type: 
  Country: DE (occurrence: DE)
  Receive Date: 20121212
  Receipt Date: 20121212
  Transmission Date: 20130627
  Serious: Yes (Death)
  Sender: FDA-Public Use
  Company Number: DE-OTSUKA-EU-2012-10361

PATIENT
  Sex: Male

DRUGS (1)
  1. PLETAL [Suspect]
     Dosage: UNK, unknown
     Route: 065
     Dates: start: 20080814

REACTIONS (1)
  - Death [Fatal]
